FAERS Safety Report 4668930-3 (Version None)
Quarter: 2005Q2

REPORT INFORMATION
  Report Type: 
  Country: None (occurrence: None)
  Receive Date: 20050523
  Receipt Date: 20050309
  Transmission Date: 20051028
  Serious: Yes (Death, Life-Threatening, Hospitalization, Other)
  Sender: FDA-Public Use
  Company Number: FR-BRISTOL-MYERS SQUIBB COMPANY-12894572

PATIENT
  Age: 59 Year
  Sex: Male
  Weight: 60 kg

DRUGS (10)
  1. ETOPOPHOS FOR INJ [Suspect]
     Indication: HODGKIN'S DISEASE
     Dates: start: 20050128, end: 20050130
  2. CISPLATIN [Suspect]
     Indication: HODGKIN'S DISEASE
     Dates: start: 20050128, end: 20050130
  3. ADRIBLASTINE [Suspect]
     Indication: HODGKIN'S DISEASE
     Dates: start: 20050128, end: 20050128
  4. GEMZAR [Suspect]
     Indication: HODGKIN'S DISEASE
     Dates: start: 20050128, end: 20050128
  5. VINCRISTINE [Suspect]
     Indication: HODGKIN'S DISEASE
     Dates: start: 20050128, end: 20050128
  6. SOLU-MEDROL [Suspect]
     Indication: HODGKIN'S DISEASE
     Dates: start: 20050128, end: 20050201
  7. ONDANSETRON [Suspect]
     Indication: HODGKIN'S DISEASE
     Dates: start: 20050128, end: 20050130
  8. PLAVIX [Concomitant]
  9. ZOCOR [Concomitant]
  10. COMBIVENT [Concomitant]
     Dates: start: 20040801

REACTIONS (7)
  - ACUTE RESPIRATORY DISTRESS SYNDROME [None]
  - APHASIA [None]
  - BONE MARROW DEPRESSION [None]
  - COMA [None]
  - PERSONALITY CHANGE [None]
  - SHOCK [None]
  - SPEECH DISORDER [None]
